FAERS Safety Report 22788967 (Version 3)
Quarter: 2024Q2

REPORT INFORMATION
  Report Type: Report from Study
  Country: DE (occurrence: DE)
  Receive Date: 20230804
  Receipt Date: 20240416
  Transmission Date: 20240717
  Serious: Yes (Other)
  Sender: FDA-Public Use
  Company Number: DE-ViiV Healthcare Limited-DE2022GSK030831

PATIENT

DRUGS (5)
  1. CABOTEGRAVIR [Suspect]
     Active Substance: CABOTEGRAVIR
     Indication: HIV infection
     Dosage: UNK
     Route: 042
     Dates: start: 20210617
  2. CABOTEGRAVIR [Suspect]
     Active Substance: CABOTEGRAVIR
  3. CABOTEGRAVIR [Suspect]
     Active Substance: CABOTEGRAVIR
  4. RILPIVIRINE [Suspect]
     Active Substance: RILPIVIRINE
     Indication: HIV infection
     Dosage: UNK
     Route: 042
     Dates: start: 20210617
  5. IMIQUIMOD [Concomitant]
     Active Substance: IMIQUIMOD
     Indication: Kaposi^s sarcoma
     Dosage: UNK
     Dates: start: 20211117

REACTIONS (2)
  - Injection site pain [Recovered/Resolved]
  - Kaposi^s sarcoma [Not Recovered/Not Resolved]

NARRATIVE: CASE EVENT DATE: 20220118
